FAERS Safety Report 20840475 (Version 1)
Quarter: 2022Q2

REPORT INFORMATION
  Report Type: Spontaneous
  Country: US (occurrence: US)
  Receive Date: 20220517
  Receipt Date: 20220517
  Transmission Date: 20220721
  Serious: Yes (Hospitalization, Other)
  Sender: FDA-Public Use
  Company Number: US-BRISTOL-MYERS SQUIBB COMPANY-2022-040739

PATIENT
  Age: 83 Year
  Sex: Female
  Weight: 71 kg

DRUGS (2)
  1. APIXABAN [Suspect]
     Active Substance: APIXABAN
     Indication: Cerebrovascular accident prophylaxis
     Route: 065
     Dates: end: 20211020
  2. SEMAGLUTIDE [Suspect]
     Active Substance: SEMAGLUTIDE
     Indication: Type 2 diabetes mellitus
     Route: 065
     Dates: start: 20200816

REACTIONS (7)
  - Anaemia [Recovered/Resolved]
  - Upper gastrointestinal haemorrhage [Recovered/Resolved]
  - Fatigue [Unknown]
  - Asthenia [Unknown]
  - Faeces discoloured [Unknown]
  - Acute kidney injury [Unknown]
  - Abdominal pain [Unknown]

NARRATIVE: CASE EVENT DATE: 20211012
